FAERS Safety Report 10315579 (Version 2)
Quarter: 2014Q4

REPORT INFORMATION
  Report Type: Other
  Country: None (occurrence: US)
  Receive Date: 20140719
  Receipt Date: 20141223
  Transmission Date: 20150528
  Serious: Yes (Hospitalization, Other)
  Sender: FDA-Public Use
  Company Number: US-GSKPPD-2014GSK012420

PATIENT
  Age: 77 Year
  Sex: Female

DRUGS (6)
  1. COUMADIN [Concomitant]
     Active Substance: WARFARIN SODIUM
     Route: 048
  2. LASIX [Concomitant]
     Active Substance: FUROSEMIDE
     Route: 048
  3. AVANDIA [Suspect]
     Active Substance: ROSIGLITAZONE MALEATE
     Indication: DIABETES MELLITUS
     Route: 048
     Dates: start: 2002
  4. ASPIRIN. [Concomitant]
     Active Substance: ASPIRIN
     Route: 048
  5. TOPROL XL [Concomitant]
     Active Substance: METOPROLOL SUCCINATE
     Route: 048
  6. ZOCOR [Concomitant]
     Active Substance: SIMVASTATIN
     Route: 048

REACTIONS (3)
  - Atrial fibrillation [Recovered/Resolved]
  - Catheterisation cardiac [Recovered/Resolved]
  - Cardiac failure congestive [Recovered/Resolved]

NARRATIVE: CASE EVENT DATE: 20040414
